FAERS Safety Report 5737977-8 (Version None)
Quarter: 2008Q2

REPORT INFORMATION
  Report Type: 
  Country: None (occurrence: None)
  Receive Date: 20080512
  Receipt Date: 20080512
  Transmission Date: 20081010
  Serious: Yes (Hospitalization)
  Sender: FDA-Public Use
  Company Number: None

PATIENT
  Sex: Female
  Weight: 55 kg

DRUGS (6)
  1. CYCLOPHOSPHAMIDE [Suspect]
     Dosage: 1170 MG
  2. DOXORUBICIN HYDROCHLORIDE [Suspect]
     Dosage: 64 MG
  3. ETOPOSIDE [Suspect]
     Dosage: 312 MG
  4. PREDNISONE TAB [Suspect]
     Dosage: 810 MG
  5. RITUXIMAB (MOAB C2B8 ANTI CD 20, CHIMERIC) [Suspect]
     Dosage: 585 MG
  6. VINCRISTINE SULFATE [Suspect]
     Dosage: 2.4 MG

REACTIONS (13)
  - DIARRHOEA [None]
  - FACIAL PAIN [None]
  - HEADACHE [None]
  - HYPOKALAEMIA [None]
  - INAPPROPRIATE ANTIDIURETIC HORMONE SECRETION [None]
  - MYALGIA [None]
  - NAUSEA [None]
  - NEURALGIA [None]
  - ORAL CANDIDIASIS [None]
  - ORTHOSIS USER [None]
  - SPINAL COMPRESSION FRACTURE [None]
  - TENSION HEADACHE [None]
  - VOMITING [None]
